FAERS Safety Report 5035387-2 (Version None)
Quarter: 2006Q2

REPORT INFORMATION
  Report Type: 
  Country: None (occurrence: None)
  Receive Date: 20060627
  Receipt Date: 20060619
  Transmission Date: 20061013
  Serious: Yes (Hospitalization)
  Sender: FDA-Public Use
  Company Number: JP-MERCK-0606USA04451

PATIENT
  Sex: Male

DRUGS (4)
  1. PROPECIA [Suspect]
     Indication: MALE PATTERN BALDNESS
     Route: 048
     Dates: start: 20060501, end: 20060615
  2. ALLOPURINOL [Concomitant]
     Indication: HYPERURICAEMIA
     Route: 048
     Dates: start: 20051201
  3. ALLELOCK [Concomitant]
     Indication: CHRONIC SINUSITIS
     Route: 048
  4. CELESTAMINE TAB [Concomitant]
     Route: 048

REACTIONS (6)
  - DIABETES MELLITUS [None]
  - DIABETES MELLITUS NON-INSULIN-DEPENDENT [None]
  - DIZZINESS [None]
  - HYPERTRIGLYCERIDAEMIA [None]
  - LIVER DISORDER [None]
  - PANCREATITIS [None]
